FAERS Safety Report 5669206-8 (Version None)
Quarter: 2008Q1

REPORT INFORMATION
  Report Type: 
  Country: None (occurrence: None)
  Receive Date: 20080317
  Receipt Date: 20080313
  Transmission Date: 20080703
  Serious: Yes (Hospitalization)
  Sender: FDA-Public Use
  Company Number: AU-BRISTOL-MYERS SQUIBB COMPANY-14115273

PATIENT
  Age: 87 Year
  Sex: Female

DRUGS (8)
  1. IRBESARTAN [Suspect]
     Route: 048
     Dates: end: 20060207
  2. MELOXICAM [Suspect]
     Indication: ARTHRITIS
     Route: 048
     Dates: end: 20060207
  3. ASPIRIN [Suspect]
     Indication: COAGULOPATHY
     Route: 048
     Dates: end: 20060207
  4. ATORVASTATIN CALCIUM [Concomitant]
  5. AMITRIPTYLINE HCL [Concomitant]
  6. ALBUTEROL [Concomitant]
  7. TIOTROPIUM BROMIDE [Concomitant]
  8. ISOSORBIDE DINITRATE [Concomitant]

REACTIONS (3)
  - ANAEMIA [None]
  - GASTRIC ULCER [None]
  - HYPERKALAEMIA [None]
